FAERS Safety Report 6282193-7 (Version None)
Quarter: 2009Q3

REPORT INFORMATION
  Report Type: 
  Country: None (occurrence: None)
  Receive Date: 20090724
  Receipt Date: 20090709
  Transmission Date: 20100115
  Serious: Yes (Other)
  Sender: FDA-Public Use
  Company Number: GB-NAPPMUNDI-GBR-2009-0005353

PATIENT
  Age: 87 Year
  Sex: Female
  Weight: 67.6 kg

DRUGS (14)
  1. OXYCODONE/NALOXONE [Suspect]
     Indication: SPINAL OSTEOARTHRITIS
     Dosage: 1 DF, BID
     Route: 048
     Dates: start: 20090622, end: 20090622
  2. AMLODIPINE [Concomitant]
     Dosage: 1 DF, DAILY
     Route: 065
     Dates: start: 20071123
  3. ASPIRIN [Concomitant]
     Dosage: 1 DF, DAILY
     Route: 065
     Dates: start: 20020702
  4. ATENOLOL [Concomitant]
     Dosage: 1 DF, DAILY
     Route: 065
     Dates: start: 20020916
  5. BENDROFLUMETHIAZIDE [Concomitant]
     Dosage: 1 DF, DAILY
     Route: 065
     Dates: start: 20020702
  6. CAPSAICIN [Concomitant]
     Dosage: 3 DF, DAILY
     Route: 065
     Dates: start: 20090511
  7. CODEINE [Concomitant]
     Dosage: UNK
     Route: 065
     Dates: start: 20060720
  8. DIPYRIDAMOLE [Concomitant]
     Dosage: 2 DF, DAILY
     Route: 065
     Dates: start: 20090515
  9. NAPROXEN [Concomitant]
     Dosage: 1 DF, BID
     Route: 065
     Dates: start: 20090622
  10. NAPROXEN [Concomitant]
     Dosage: UNK
     Route: 065
     Dates: end: 20090511
  11. OMEPRAZOLE [Concomitant]
     Dosage: 1 DF, BID
     Route: 065
     Dates: start: 20051003
  12. PARACETAMOL [Concomitant]
     Dosage: UNK
     Route: 065
     Dates: start: 20080602
  13. RAMIPRIL [Concomitant]
     Dosage: 1 DF, DAILY
     Route: 065
     Dates: start: 20021212
  14. SIMVASTATIN [Concomitant]
     Dosage: 1 DF, DAILY
     Route: 065
     Dates: start: 20080602

REACTIONS (4)
  - DIZZINESS [None]
  - LIP SWELLING [None]
  - NAUSEA [None]
  - SWOLLEN TONGUE [None]
